FAERS Safety Report 10951981 (Version 1)
Quarter: 2015Q1

REPORT INFORMATION
  Report Type: Spontaneous
  Country: US (occurrence: US)
  Receive Date: 20150325
  Receipt Date: 20150325
  Transmission Date: 20150721
  Serious: Yes (Death)
  Sender: FDA-Public Use
  Company Number: US-CIPLA LTD.-2015US02236

PATIENT

DRUGS (10)
  1. PREGABALIN. [Suspect]
     Active Substance: PREGABALIN
  2. ACETAMINOPHEN/HYDROCODONE [Suspect]
     Active Substance: ACETAMINOPHEN\HYDROCODONE
  3. LISINOPRIL. [Suspect]
     Active Substance: LISINOPRIL
  4. CLONAZEPAM. [Suspect]
     Active Substance: CLONAZEPAM
  5. ARIPIPRAZOLE. [Suspect]
     Active Substance: ARIPIPRAZOLE
  6. ACETAMINOPHEN. [Suspect]
     Active Substance: ACETAMINOPHEN
  7. ZOLPIDEM TARTARATE [Suspect]
     Active Substance: ZOLPIDEM TARTRATE
  8. METFORMIN [Suspect]
     Active Substance: METFORMIN HYDROCHLORIDE
  9. CYCLOBENZAPRINE [Suspect]
     Active Substance: CYCLOBENZAPRINE
  10. PROMETHAZINE [Suspect]
     Active Substance: PROMETHAZINE\PROMETHAZINE HYDROCHLORIDE

REACTIONS (1)
  - Completed suicide [Fatal]
